FAERS Safety Report 18962027 (Version 1)
Quarter: 2021Q1

REPORT INFORMATION
  Report Type: Spontaneous
  Country: US (occurrence: US)
  Receive Date: 20210303
  Receipt Date: 20210303
  Transmission Date: 20210420
  Serious: No
  Sender: FDA-Public Use
  Company Number: US-SA-2019SA283583

PATIENT
  Sex: Female

DRUGS (2)
  1. LUMIZYME [Suspect]
     Active Substance: ALGLUCOSIDASE ALFA
     Indication: GLYCOGEN STORAGE DISEASE TYPE II
     Dosage: 350 MG, QW
     Route: 042
     Dates: start: 20190923
  2. LUMIZYME [Suspect]
     Active Substance: ALGLUCOSIDASE ALFA
     Dosage: UNK
     Route: 042
     Dates: start: 202001

REACTIONS (2)
  - Central venous catheter removal [Unknown]
  - Central venous catheterisation [Unknown]
